FAERS Safety Report 4929372-6 (Version None)
Quarter: 2006Q1

REPORT INFORMATION
  Report Type: 
  Country: None (occurrence: None)
  Receive Date: 20060224
  Receipt Date: 20060215
  Transmission Date: 20060701
  Serious: Yes (Other)
  Sender: FDA-Public Use
  Company Number: 2006023841

PATIENT
  Age: 80 Year
  Sex: Male

DRUGS (4)
  1. DIFLUCAN [Suspect]
     Indication: KERATITIS FUNGAL
     Dosage: INTRAOCULAR  SEE IMAGE
     Route: 031
     Dates: start: 20060101, end: 20060116
  2. DIFLUCAN [Suspect]
     Indication: KERATITIS FUNGAL
     Dosage: INTRAOCULAR  SEE IMAGE
     Route: 031
     Dates: start: 20060109
  3. MICAFUNGIN [Concomitant]
  4. OTHER ANTIBACTERIALS (ANTIBACTERIALS FOR SYSTEMIC USE) [Concomitant]

REACTIONS (11)
  - ALANINE AMINOTRANSFERASE INCREASED [None]
  - ANGIOPATHY [None]
  - ASPARTATE AMINOTRANSFERASE INCREASED [None]
  - CONDITION AGGRAVATED [None]
  - CONJUNCTIVAL HYPERAEMIA [None]
  - CORNEAL EPITHELIUM DISORDER [None]
  - EYE PAIN [None]
  - HEPATIC FUNCTION ABNORMAL [None]
  - IRIS ADHESIONS [None]
  - THERAPY NON-RESPONDER [None]
  - ULCERATIVE KERATITIS [None]
